FAERS Safety Report 7617466-6 (Version None)
Quarter: 2011Q3

REPORT INFORMATION
  Report Type: 
  Country: None (occurrence: None)
  Receive Date: 20110718
  Receipt Date: 20110714
  Transmission Date: 20111222
  Serious: No
  Sender: FDA-Public Use
  Company Number: US-PFIZER INC-2011160060

PATIENT
  Sex: Female
  Weight: 77.1 kg

DRUGS (8)
  1. FOLIC ACID [Concomitant]
     Dosage: 1 MG, 1X/DAY
  2. ACETYLSALICYLIC ACID [Concomitant]
     Dosage: 81 MG, UNK
  3. CALCIUM [Concomitant]
     Dosage: UNK
  4. PHENYTOIN [Suspect]
     Indication: CONVULSION
     Dosage: UNK
     Dates: start: 20101001, end: 20101101
  5. DILANTIN [Suspect]
     Indication: CONVULSION
     Dosage: UNK
     Route: 048
     Dates: start: 20040101
  6. VITAMIN D [Concomitant]
     Dosage: UNK
  7. CARBAMAZEPINE [Concomitant]
     Indication: CONVULSION
     Dosage: 100 MG, 1X/DAY
  8. VALSARTAN [Concomitant]
     Indication: HYPERTENSION
     Dosage: UNK, 1X/DAY

REACTIONS (1)
  - MALAISE [None]
